FAERS Safety Report 21923739 (Version 2)
Quarter: 2023Q1

REPORT INFORMATION
  Report Type: Spontaneous
  Country: US (occurrence: US)
  Receive Date: 20230130
  Receipt Date: 20230224
  Transmission Date: 20230418
  Serious: Yes (Death, Life-Threatening, Other)
  Sender: FDA-Public Use
  Company Number: US-UROGEN PHARMA LTD.-2023-UGN-000010

PATIENT

DRUGS (3)
  1. JELMYTO [Suspect]
     Active Substance: MITOMYCIN
     Indication: Transitional cell cancer of the renal pelvis and ureter
     Dosage: UNK (INSTILLATION)
     Dates: start: 20221223, end: 20221223
  2. JELMYTO [Suspect]
     Active Substance: MITOMYCIN
     Indication: Renal mass
     Dosage: UNK (INSTILLATION)
     Dates: start: 20230106, end: 20230106
  3. JELMYTO [Suspect]
     Active Substance: MITOMYCIN
     Dosage: UNK (INSTILLATION)
     Dates: start: 20230113, end: 20230113

REACTIONS (2)
  - International normalised ratio increased [Fatal]
  - Fall [Unknown]

NARRATIVE: CASE EVENT DATE: 20221201
